FAERS Safety Report 20126240 (Version 1)
Quarter: 2021Q4

REPORT INFORMATION
  Report Type: Spontaneous
  Country: US (occurrence: None)
  Receive Date: 20211126
  Receipt Date: 20211126
  Transmission Date: 20220303
  Serious: Yes (Other)
  Sender: FDA-Public Use
  Company Number: None

PATIENT
  Age: 44 Year
  Sex: Female
  Weight: 104.33 kg

DRUGS (14)
  1. PARAGARD T 380A [Suspect]
     Active Substance: COPPER
     Dates: start: 20120701, end: 20211020
  2. AMPHETAMINE-DEXTROAMPHET ER [Concomitant]
  3. DEXTROAMPHET SACCHARAT, AMPHET ASPARTATE, DEXTROAMPHET SULFATE AND AMP [Concomitant]
     Active Substance: AMPHETAMINE ASPARTATE\AMPHETAMINE SULFATE\DEXTROAMPHETAMINE SACCHARATE\DEXTROAMPHETAMINE SULFATE
  4. LEVOTHYROXINE [Concomitant]
     Active Substance: LEVOTHYROXINE
  5. METFORMIN [Concomitant]
     Active Substance: METFORMIN HYDROCHLORIDE
  6. SPIRONOLACTONE [Concomitant]
     Active Substance: SPIRONOLACTONE
  7. FLUTICASONE [Concomitant]
     Active Substance: FLUTICASONE
  8. ATENOLOL [Concomitant]
     Active Substance: ATENOLOL
  9. FEXOFENADINE [Concomitant]
     Active Substance: FEXOFENADINE HYDROCHLORIDE
  10. BETAMETHASONE VALERATE [Concomitant]
  11. METRONIDAZOLE [Concomitant]
     Active Substance: METRONIDAZOLE
  12. METOCLOPRMIDE [Concomitant]
  13. VITAMINS [Concomitant]
     Active Substance: VITAMINS
  14. OMEGA 3 [Concomitant]
     Active Substance: CAPSAICIN

REACTIONS (3)
  - Abnormal uterine bleeding [None]
  - Complication associated with device [None]
  - Device issue [None]

NARRATIVE: CASE EVENT DATE: 20211020
